FAERS Safety Report 5072440-1 (Version None)
Quarter: 2006Q3

REPORT INFORMATION
  Report Type: 
  Country: None (occurrence: None)
  Receive Date: 20060801
  Receipt Date: 20060720
  Transmission Date: 20061208
  Serious: Yes (Other)
  Sender: FDA-Public Use
  Company Number: 2006075113

PATIENT
  Age: 38 Year
  Sex: Female

DRUGS (6)
  1. LYRICA [Suspect]
     Indication: NEURALGIA
     Dosage: 600 MG (300 MEQ, 1 IN 1 D), ORAL
     Route: 048
     Dates: start: 20050501
  2. ALL OTHER THERAPEUTIC PRODUCTS (ALL OTHER THERAPEUTIC PRODUCTS) [Concomitant]
  3. KETENSIN (KETANSERIN TARTRATE) [Concomitant]
  4. DIAZEPAM [Concomitant]
  5. ALL OTHER THERAPEUTIC PRODUCTS (ALL OTHER THERAPEUTIC PRODUCTS) [Concomitant]
  6. METFORMIN (METFORMIN) [Concomitant]

REACTIONS (1)
  - PERIPHERAL NERVE PALSY [None]
